FAERS Safety Report 18377418 (Version 2)
Quarter: 2020Q4

REPORT INFORMATION
  Report Type: Spontaneous
  Country: US (occurrence: US)
  Receive Date: 20201013
  Receipt Date: 20201019
  Transmission Date: 20210114
  Serious: No
  Sender: FDA-Public Use
  Company Number: US-PFIZER INC-2020392990

PATIENT
  Age: 76 Year
  Sex: Female
  Weight: 88 kg

DRUGS (2)
  1. PREMARIN [Suspect]
     Active Substance: ESTROGENS, CONJUGATED
     Indication: HOT FLUSH
  2. PREMARIN [Suspect]
     Active Substance: ESTROGENS, CONJUGATED
     Indication: VULVOVAGINAL DRYNESS
     Dosage: 0.625 MG, DAILY (0.625 MG TABLET TAKEN BY MOUTH DAILY)
     Route: 048
     Dates: start: 1987

REACTIONS (2)
  - Intentional product misuse [Unknown]
  - Therapeutic response unexpected [Unknown]
